FAERS Safety Report 13239071 (Version 1)
Quarter: 2017Q1

REPORT INFORMATION
  Report Type: Spontaneous
  Country: US (occurrence: US)
  Receive Date: 20170216
  Receipt Date: 20170216
  Transmission Date: 20170428
  Serious: No
  Sender: FDA-Public Use
  Company Number: US-TEVA-727657ACC

PATIENT
  Sex: Female

DRUGS (1)
  1. COPAXONE [Suspect]
     Active Substance: GLATIRAMER ACETATE
     Dosage: FORM STRENGTH: UNKNOWN

REACTIONS (6)
  - Anxiety [Unknown]
  - Diplopia [Unknown]
  - Vertigo [Unknown]
  - Dysarthria [Unknown]
  - Muscle spasticity [Unknown]
  - Memory impairment [Unknown]
